FAERS Safety Report 9958459 (Version 1)
Quarter: 2014Q1

REPORT INFORMATION
  Report Type: Spontaneous
  Country: US (occurrence: US)
  Receive Date: 20140305
  Receipt Date: 20140305
  Transmission Date: 20141002
  Serious: No
  Sender: FDA-Public Use
  Company Number: US-BIOGENIDEC-2014BI020085

PATIENT
  Age: 40 Year
  Sex: Female

DRUGS (1)
  1. TYSABRI [Suspect]
     Indication: MULTIPLE SCLEROSIS
     Route: 042
     Dates: start: 20130904, end: 20140210

REACTIONS (4)
  - Hypoaesthesia oral [Unknown]
  - Paraesthesia oral [Unknown]
  - Dissociation [Unknown]
  - Infusion related reaction [Unknown]
